FAERS Safety Report 5943124-X (Version None)
Quarter: 2008Q4

REPORT INFORMATION
  Report Type: 
  Country: None (occurrence: None)
  Receive Date: 20081103
  Receipt Date: 20070904
  Transmission Date: 20090506
  Serious: Yes (Hospitalization)
  Sender: FDA-Public Use
  Company Number: 2005BI018473

PATIENT
  Age: 56 Year

DRUGS (2)
  1. AMEVIVE [Suspect]
     Indication: PSORIASIS
     Dosage: 15 MG, WEEKLY, INTRAMUSCULAR
     Route: 030
     Dates: start: 20030716
  2. PREDNISOLONE ACETATE [Concomitant]

REACTIONS (6)
  - ADVERSE DRUG REACTION [None]
  - AGITATION [None]
  - BACK INJURY [None]
  - HAEMOGLOBIN INCREASED [None]
  - PAIN [None]
  - VOMITING [None]
